FAERS Safety Report 8239534-0 (Version None)
Quarter: 2012Q1

REPORT INFORMATION
  Report Type: 
  Country: None (occurrence: None)
  Receive Date: 20120326
  Receipt Date: 20120314
  Transmission Date: 20120608
  Serious: Yes (Other)
  Sender: FDA-Public Use
  Company Number: GGEL20120300301

PATIENT
  Age: 28 Year
  Sex: Male

DRUGS (3)
  1. TOPIRAMATE [Suspect]
     Indication: EPILEPSY
     Dosage: 200 MILLIGRAM, 2 IN 1 D, ORAL USE
     Route: 048
     Dates: start: 20111118, end: 20120116
  2. PIZOTIFEN (PIZOTIFEN) (PIZOTIFEN) [Concomitant]
  3. SUMATRIPTAN SUCCINATE [Concomitant]

REACTIONS (2)
  - TOOTH DISCOLOURATION [None]
  - DENTAL CARIES [None]
